FAERS Safety Report 23150374 (Version 1)
Quarter: 2023Q4

REPORT INFORMATION
  Report Type: Spontaneous
  Country: DE (occurrence: DE)
  Receive Date: 20231106
  Receipt Date: 20231106
  Transmission Date: 20240110
  Serious: Yes (Other)
  Sender: FDA-Public Use
  Company Number: DE-BRISTOL-MYERS SQUIBB COMPANY-2023-150189

PATIENT
  Age: 62 Year
  Sex: Male

DRUGS (6)
  1. EVEROLIMUS [Suspect]
     Active Substance: EVEROLIMUS
     Indication: Product used for unknown indication
     Dosage: UNK (GRADUAL DOSAGE (5 - 7.5 MG) DOSAGE (5 7.5 MG))
     Route: 065
     Dates: start: 202303
  2. SUNITINIB [Suspect]
     Active Substance: SUNITINIB
     Indication: Product used for unknown indication
     Dosage: UNK
     Route: 065
     Dates: start: 201708
  3. SUNITINIB [Suspect]
     Active Substance: SUNITINIB
     Dosage: UNK
     Route: 065
     Dates: start: 201803
  4. SUNITINIB [Suspect]
     Active Substance: SUNITINIB
     Dosage: 37.5 MG, BID
     Route: 065
     Dates: start: 202212
  5. NIVOLUMAB [Suspect]
     Active Substance: NIVOLUMAB
     Indication: Metastatic renal cell carcinoma
     Dosage: UNK
     Route: 065
     Dates: start: 2017, end: 201803
  6. DENOSUMAB [Concomitant]
     Active Substance: DENOSUMAB
     Indication: Osteopathic treatment
     Dosage: UNK
     Route: 065

REACTIONS (16)
  - Metastases to lung [Unknown]
  - Pathological fracture [Unknown]
  - Pulmonary vascular disorder [Unknown]
  - Malignant neoplasm progression [Unknown]
  - Splenic artery aneurysm [Unknown]
  - Metastases to skin [Unknown]
  - Gastrointestinal haemorrhage [Unknown]
  - Nasopharyngeal cancer metastatic [Unknown]
  - Splenic abscess [Unknown]
  - Pulmonary embolism [Unknown]
  - Shock haemorrhagic [Unknown]
  - Metastases to lymph nodes [Unknown]
  - Gastric fistula [Unknown]
  - Metastases to eye [Unknown]
  - Epistaxis [Unknown]
  - Weight decreased [Unknown]

NARRATIVE: CASE EVENT DATE: 20171201
